FAERS Safety Report 13304060 (Version 2)
Quarter: 2017Q1

REPORT INFORMATION
  Report Type: Spontaneous
  Country: FR (occurrence: FR)
  Receive Date: 20170308
  Receipt Date: 20170330
  Transmission Date: 20170428
  Serious: Yes (Other)
  Sender: FDA-Public Use
  Company Number: FR-BAXTER-2017BAX009347

PATIENT
  Age: 20 Year
  Sex: Female

DRUGS (1)
  1. CHLORURE DE SODIUM 0.9% VIAFLO, SOLUTION POUR PERFUSION [Suspect]
     Active Substance: SODIUM CHLORIDE
     Indication: INTENTIONAL PRODUCT MISUSE
     Route: 065

REACTIONS (4)
  - Breast pain [Unknown]
  - Pyrexia [Unknown]
  - Intentional product misuse [Unknown]
  - Breast enlargement [Unknown]
